FAERS Safety Report 10970227 (Version 1)
Quarter: 2015Q1

REPORT INFORMATION
  Report Type: Spontaneous
  Country: US (occurrence: US)
  Receive Date: 20150331
  Receipt Date: 20150331
  Transmission Date: 20150721
  Serious: Yes (Other)
  Sender: FDA-Public Use
  Company Number: US-BAUSCH-BL-2015-010256

PATIENT
  Age: 40 Year
  Sex: Female

DRUGS (2)
  1. TRIENTINE [Suspect]
     Active Substance: TRIENTINE
     Indication: HEPATO-LENTICULAR DEGENERATION
     Route: 065
  2. PREDNISONE. [Suspect]
     Active Substance: PREDNISONE
     Indication: HEPATO-LENTICULAR DEGENERATION
     Route: 065

REACTIONS (4)
  - Enteritis [Unknown]
  - Proctitis [Unknown]
  - Colitis [Recovered/Resolved]
  - Neuropsychiatric syndrome [Recovered/Resolved]
